FAERS Safety Report 12630309 (Version 1)
Quarter: 2016Q3

REPORT INFORMATION
  Report Type: Spontaneous
  Country: US (occurrence: US)
  Receive Date: 20160808
  Receipt Date: 20160808
  Transmission Date: 20161109
  Serious: No
  Sender: FDA-Public Use
  Company Number: US-ACTAVIS-2016-13646

PATIENT
  Sex: Female

DRUGS (9)
  1. LYRICA [Suspect]
     Active Substance: PREGABALIN
     Indication: HEADACHE
     Dosage: UNK
     Route: 048
     Dates: start: 20150904, end: 20151007
  2. CAMBIA [Suspect]
     Active Substance: DICLOFENAC POTASSIUM
     Indication: HEADACHE
     Dosage: 1 PACKET 2 TIMES DAILY AS NEEDED
     Route: 048
     Dates: start: 20150904
  3. LYRICA [Suspect]
     Active Substance: PREGABALIN
     Dosage: 1 DF, BID
     Route: 048
     Dates: start: 20151007, end: 20151202
  4. ROBAXIN [Suspect]
     Active Substance: METHOCARBAMOL
     Dosage: 1 DF, QID
     Route: 048
     Dates: start: 20151103, end: 20151202
  5. TOPAMAX [Suspect]
     Active Substance: TOPIRAMATE
     Indication: HEADACHE
     Dosage: 25 MG TWICE DAILY FOR ONE WEEK AND THEN 50 MG TWICE DAILY AND CONTINUED WITH IT
     Route: 048
     Dates: start: 20151104, end: 20151202
  6. FIORICET [Suspect]
     Active Substance: ACETAMINOPHEN\BUTALBITAL\CAFFEINE
     Indication: HEADACHE
     Dosage: 1 TABLET, EVERY 4 HOURS AS NEEDED
     Route: 048
  7. CHANTIX [Suspect]
     Active Substance: VARENICLINE TARTRATE
     Indication: HEADACHE
     Dosage: 1 MG, BID
     Route: 048
  8. ROBAXIN [Suspect]
     Active Substance: METHOCARBAMOL
     Indication: HEADACHE
     Dosage: 1 DF, QID
     Route: 048
     Dates: start: 20150904, end: 20151102
  9. CYMBALTA [Suspect]
     Active Substance: DULOXETINE HYDROCHLORIDE
     Indication: HEADACHE
     Dosage: 30 MG, QD
     Route: 048

REACTIONS (3)
  - Muscle spasms [Unknown]
  - Headache [Unknown]
  - Neck pain [Unknown]
